FAERS Safety Report 7741370 (Version 2)
Quarter: 2013Q1

REPORT INFORMATION
  Report Type: Report from Study
  Country: DE (occurrence: DE)
  Receive Date: 20101228
  Receipt Date: 20130320
  Transmission Date: 20140127
  Serious: Yes (Death, Hospitalization, Other)
  Sender: FDA-Public Use
  Company Number: DE-ROCHE-749816

PATIENT
  Sex: 0

DRUGS (11)
  1. MYCOPHENOLATE MOFETIL [Suspect]
     Indication: IMMUNOSUPPRESSANT DRUG THERAPY
     Route: 042
  2. SIROLIMUS [Suspect]
     Indication: IMMUNOSUPPRESSANT DRUG THERAPY
     Route: 048
  3. SIROLIMUS [Suspect]
     Route: 048
  4. TACROLIMUS [Suspect]
     Indication: IMMUNOSUPPRESSANT DRUG THERAPY
     Dosage: 0.01-0.03MG/KG/DAY
     Route: 042
  5. ATG [Concomitant]
     Route: 065
  6. ATG [Concomitant]
     Route: 065
  7. METHYLPREDNISOLON [Concomitant]
     Route: 065
  8. METHYLPREDNISOLON [Concomitant]
     Route: 065
  9. PREDNISOLONE [Concomitant]
     Dosage: 1TO0.1MG/KG/DAY OVER A PERIOD OF 4 WEEKS
     Route: 065
  10. SIMVASTATIN [Concomitant]
  11. FLUVASTATIN [Concomitant]

REACTIONS (16)
  - Lung adenocarcinoma [Fatal]
  - Cytomegalovirus infection [Unknown]
  - Transplant rejection [Unknown]
  - Impaired healing [Unknown]
  - Pericardial effusion [Unknown]
  - Renal impairment [Unknown]
  - Graft complication [Unknown]
  - Pleural effusion [Unknown]
  - Lymphoma [Unknown]
  - Skin cancer [Unknown]
  - Lung neoplasm [Unknown]
  - Neoplasm [Unknown]
  - Infection [Unknown]
  - Diabetes mellitus [Not Recovered/Not Resolved]
  - Gastric ulcer [Unknown]
  - Duodenal ulcer [Unknown]
